FAERS Safety Report 23047175 (Version 2)
Quarter: 2023Q4

REPORT INFORMATION
  Report Type: Report from Study
  Country: US (occurrence: US)
  Receive Date: 20231009
  Receipt Date: 20231107
  Transmission Date: 20240110
  Serious: Yes (Other)
  Sender: FDA-Public Use
  Company Number: US-ABBVIE-5435832

PATIENT
  Age: 55 Year
  Sex: Female

DRUGS (2)
  1. HUMIRA [Suspect]
     Active Substance: ADALIMUMAB
     Indication: Rheumatoid arthritis
     Dosage: FORM STRENGTH WAS 40 MILLIGRAMS
     Route: 058
     Dates: start: 20220328
  2. PREDNISONE [Concomitant]
     Active Substance: PREDNISONE
     Indication: Product used for unknown indication

REACTIONS (4)
  - Systemic lupus erythematosus [Not Recovered/Not Resolved]
  - Hormone level abnormal [Unknown]
  - Stress [Not Recovered/Not Resolved]
  - Inflammation [Recovering/Resolving]

NARRATIVE: CASE EVENT DATE: 20231002
